FAERS Safety Report 12285036 (Version 1)
Quarter: 2016Q2

REPORT INFORMATION
  Report Type: Spontaneous
  Country: US (occurrence: None)
  Receive Date: 20160419
  Receipt Date: 20160419
  Transmission Date: 20160815
  Serious: Yes (Hospitalization)
  Sender: FDA-Public Use
  Company Number: None

PATIENT
  Age: 84 Year
  Sex: Male
  Weight: 99.6 kg

DRUGS (1)
  1. DESMOPRESSIN, 0.2MG [Suspect]
     Active Substance: DESMOPRESSIN
     Indication: NOCTURIA
     Route: 048

REACTIONS (2)
  - Fall [None]
  - Blood sodium decreased [None]

NARRATIVE: CASE EVENT DATE: 20160417
